FAERS Safety Report 4548776-7 (Version None)
Quarter: 2005Q1

REPORT INFORMATION
  Report Type: 
  Country: None (occurrence: None)
  Receive Date: 20050107
  Receipt Date: 20050107
  Transmission Date: 20050727
  Serious: Yes (Other)
  Sender: FDA-Public Use
  Company Number: None

PATIENT
  Age: 49 Year
  Sex: Male
  Weight: 83.2 kg

DRUGS (2)
  1. LISINOPRIL [Suspect]
     Indication: HYPERTENSION
     Dosage: 20MG/ DAY
     Dates: start: 20040909, end: 20040924
  2. FELODIPINE [Suspect]
     Dosage: 10MG/D
     Dates: start: 20040909, end: 20040924

REACTIONS (1)
  - SWELLING FACE [None]
